FAERS Safety Report 4415873-6 (Version None)
Quarter: 2004Q3

REPORT INFORMATION
  Report Type: 
  Country: None (occurrence: None)
  Receive Date: 20040805
  Receipt Date: 20040415
  Transmission Date: 20050211
  Serious: No
  Sender: FDA-Public Use
  Company Number: US-GLAXOSMITHKLINE-A0507292A

PATIENT
  Age: 52 Year
  Sex: Female

DRUGS (1)
  1. AVANDAMET [Suspect]
     Route: 048
     Dates: start: 20040113

REACTIONS (3)
  - ARTHRALGIA [None]
  - SWELLING [None]
  - WEIGHT INCREASED [None]
